FAERS Safety Report 24586074 (Version 1)
Quarter: 2024Q4

REPORT INFORMATION
  Report Type: Spontaneous
  Country: PR (occurrence: PR)
  Receive Date: 20241106
  Receipt Date: 20241106
  Transmission Date: 20250114
  Serious: Yes (Death, Other)
  Sender: BRISTOL-MYERS SQUIBB COMPANY
  Company Number: PR-BRISTOL-MYERS SQUIBB COMPANY-2024-172668

PATIENT
  Age: 60 Year
  Sex: Male
  Weight: 90.72 kg

DRUGS (1)
  1. POMALYST [Suspect]
     Active Substance: POMALIDOMIDE
     Indication: Plasma cell myeloma
     Dosage: TAKE 1 CAPSULE DAILY FOR 21 DAYS EVERY 28 DAYS
     Route: 048
     Dates: start: 20241001

REACTIONS (1)
  - Death [Fatal]

NARRATIVE: CASE EVENT DATE: 20241031
